FAERS Safety Report 8770814 (Version 1)
Quarter: 2012Q4

REPORT INFORMATION
  Report Type: 
  Country: NL (occurrence: NL)
  Receive Date: 20120906
  Receipt Date: 20120906
  Transmission Date: 20130627
  Serious: Yes (Other)
  Sender: FDA-Public Use
  Company Number: NL-PFIZER INC-2012214832

PATIENT
  Sex: Female

DRUGS (1)
  1. STEDIRIL-30 [Suspect]
     Dosage: UNK

REACTIONS (1)
  - Infection [Unknown]
